FAERS Safety Report 7936576 (Version 3)
Quarter: 2014Q1

REPORT INFORMATION
  Report Type: Spontaneous
  Country: US (occurrence: US)
  Receive Date: 20110509
  Receipt Date: 20140203
  Transmission Date: 20141002
  Serious: Yes (Other)
  Sender: FDA-Public Use
  Company Number: US-BAYER-2011-038860

PATIENT
  Age: 26 Year
  Sex: Female
  Weight: 121.54 kg

DRUGS (12)
  1. YASMIN [Suspect]
     Indication: CONTRACEPTION
     Dosage: UNK
     Dates: start: 2004, end: 200910
  2. YASMIN [Suspect]
     Indication: PREMENSTRUAL SYNDROME
  3. YAZ [Suspect]
     Indication: CONTRACEPTION
     Dosage: UNK
     Dates: start: 2004, end: 200910
  4. YAZ [Suspect]
     Indication: PREMENSTRUAL SYNDROME
  5. TOPROL XL [Concomitant]
     Dosage: 100 MG, DAILY
  6. HYDROCHLOROTHIAZIDE [Concomitant]
     Dosage: 25 MG, DAILY
  7. NAPROXEN [Concomitant]
  8. METFORMIN [Concomitant]
     Dosage: 500 MG, DAILY
  9. LABETALOL [Concomitant]
     Dosage: UNK
     Dates: start: 200402, end: 2010
  10. AZITHROMYCIN [Concomitant]
     Dosage: 500 MG, UNK
  11. AZITHROMYCIN [Concomitant]
     Dosage: 250 MG, DAILY
  12. PROMETHAZINE VC W/CODEINE [CODEINE PHOS,PHENYLEPHR HCL,PROMETHAZ H [Concomitant]
     Dosage: 1 TEASPOONFUL 4 TIMES DAILY
     Dates: start: 20080404

REACTIONS (4)
  - Gallbladder injury [None]
  - Cholelithiasis [None]
  - Pain [None]
  - Cholecystitis chronic [None]
